FAERS Safety Report 22072650 (Version 1)
Quarter: 2023Q1

REPORT INFORMATION
  Report Type: Spontaneous
  Country: US (occurrence: US)
  Receive Date: 20230308
  Receipt Date: 20230308
  Transmission Date: 20230418
  Serious: Yes (Death, Other)
  Sender: FDA-Public Use
  Company Number: US-BRISTOL-MYERS SQUIBB COMPANY-2023-033758

PATIENT
  Age: 78 Year
  Sex: Female

DRUGS (1)
  1. OPDIVO [Suspect]
     Active Substance: NIVOLUMAB
     Indication: Colon cancer
     Dosage: DOSE : 240 MG;     FREQ : EVERY 14 DAYS

REACTIONS (1)
  - Death [Fatal]

NARRATIVE: CASE EVENT DATE: 20230222
